FAERS Safety Report 7554166-5 (Version None)
Quarter: 2011Q2

REPORT INFORMATION
  Report Type: 
  Country: None (occurrence: None)
  Receive Date: 20110617
  Receipt Date: 20110607
  Transmission Date: 20111010
  Serious: Yes (Hospitalization)
  Sender: FDA-Public Use
  Company Number: FR-SANOFI-AVENTIS-2011SA037001

PATIENT
  Age: 81 Year
  Sex: Female

DRUGS (11)
  1. ORBENIN CAP [Concomitant]
     Indication: ERYSIPELAS
     Dates: start: 20110510, end: 20110520
  2. CLOPIDOGREL BISULFATE [Suspect]
     Route: 048
     Dates: end: 20110520
  3. PANTOPRAZOLE SODIUM [Concomitant]
     Dosage: 0-0-1
     Route: 065
  4. TINZAPARIN SODIUM [Suspect]
     Indication: ERYSIPELAS
     Route: 058
     Dates: start: 20110510, end: 20110520
  5. RAMIPRIL [Concomitant]
     Dosage: 0-1-0
     Route: 065
  6. ALDACTONE [Concomitant]
     Dosage: 1/2-0-0
     Route: 065
  7. CYMBALTA [Concomitant]
     Dosage: 0-0-1
     Route: 065
  8. LASIX [Concomitant]
     Dosage: 1-0-0
     Route: 065
  9. BISOPROLOL FUMARATE [Concomitant]
     Dosage: 1-0-0
     Route: 065
  10. ATORVASTATIN CALCIUM [Concomitant]
     Dosage: 0-0-1
     Route: 065
  11. OFLOXACIN [Concomitant]
     Indication: ERYSIPELAS
     Dates: start: 20110510, end: 20110520

REACTIONS (4)
  - SHOCK HAEMORRHAGIC [None]
  - MUSCLE NECROSIS [None]
  - HAEMATOMA [None]
  - TRAUMATIC HAEMORRHAGE [None]
